FAERS Safety Report 5573359-X (Version None)
Quarter: 2007Q4

REPORT INFORMATION
  Report Type: 
  Country: None (occurrence: None)
  Receive Date: 20071220
  Receipt Date: 20071220
  Transmission Date: 20080405
  Serious: Yes (Hospitalization)
  Sender: FDA-Public Use
  Company Number: None

PATIENT
  Age: 63 Year
  Sex: Male
  Weight: 70 kg

DRUGS (4)
  1. DOXYCYCLINE [Suspect]
     Indication: PROSTATECTOMY
     Dosage: 100MG  BID  PO
     Route: 048
     Dates: start: 20070530, end: 20070604
  2. VANCOMYCIN [Concomitant]
  3. LEVAQUIN [Concomitant]
  4. IBUPROFEN [Concomitant]

REACTIONS (2)
  - PYREXIA [None]
  - RASH GENERALISED [None]
